FAERS Safety Report 5986093-9 (Version None)
Quarter: 2008Q4

REPORT INFORMATION
  Report Type: 
  Country: None (occurrence: None)
  Receive Date: 20081209
  Receipt Date: 20081127
  Transmission Date: 20090506
  Serious: Yes (Hospitalization, Other)
  Sender: FDA-Public Use
  Company Number: FR-BAYER-200831694GPV

PATIENT
  Age: 48 Year
  Sex: Female

DRUGS (3)
  1. IZILOX [Suspect]
     Indication: SINUS HEADACHE
     Dosage: TOTAL DAILY DOSE: 400 MG  UNIT DOSE: 400 MG
     Route: 048
     Dates: start: 20080113, end: 20080113
  2. IXPRIM [Suspect]
     Indication: SINUS HEADACHE
     Route: 048
     Dates: start: 20080113, end: 20080113
  3. NSAID'S [Concomitant]
     Indication: COLITIS ISCHAEMIC
     Route: 065

REACTIONS (3)
  - HEAD INJURY [None]
  - LOSS OF CONSCIOUSNESS [None]
  - MALAISE [None]
